FAERS Safety Report 8420156 (Version 5)
Quarter: 2013Q3

REPORT INFORMATION
  Report Type: Report from Study
  Country: US (occurrence: US)
  Receive Date: 20120222
  Receipt Date: 20130805
  Transmission Date: 20140515
  Serious: Yes (Hospitalization)
  Sender: FDA-Public Use
  Company Number: US-UCBSA-051583

PATIENT
  Age: 26 Year
  Sex: Female
  Weight: 46.9 kg

DRUGS (25)
  1. CIMZIA [Suspect]
     Indication: CROHN^S DISEASE
     Route: 058
     Dates: start: 20110110, end: 20120124
  2. CIMZIA [Suspect]
     Indication: CROHN^S DISEASE
     Dosage: 1 DOSE
     Route: 058
     Dates: start: 2009, end: 2009
  3. XANAX [Concomitant]
     Indication: ANXIETY
     Route: 048
  4. XANAX [Concomitant]
     Indication: ANXIETY
     Dosage: 0.5 ONCE NIGHTLY
     Route: 048
  5. LOMOTIL [Concomitant]
     Indication: CROHN^S DISEASE
     Dosage: 2.5-0.025 MG, 2 TID
     Route: 048
  6. LOMOTIL [Concomitant]
     Indication: CROHN^S DISEASE
     Dosage: 2.5-0.025 MG, 1-2 TAB QID
     Route: 048
  7. NEXIUM [Concomitant]
     Indication: GASTROOESOPHAGEAL REFLUX DISEASE
     Route: 048
  8. LEVOQUIN [Concomitant]
     Indication: CROHN^S DISEASE
     Dosage: 500 DAILY
     Dates: end: 2012
  9. LEVOQUIN [Concomitant]
     Indication: CROHN^S DISEASE
     Dates: start: 2007, end: 2008
  10. APRISO [Concomitant]
     Indication: CROHN^S DISEASE
     Route: 048
     Dates: start: 200909
  11. APRISO [Concomitant]
     Indication: CROHN^S DISEASE
     Dosage: 375X4TID
  12. APRISO [Concomitant]
     Indication: CROHN^S DISEASE
     Dosage: 1000 TID
  13. CANASA [Concomitant]
     Indication: CROHN^S DISEASE
  14. OPIUM [Concomitant]
     Indication: PAIN
     Dosage: 10 MG/ML, 0.6 MI, QID
  15. PERCOCET [Concomitant]
     Indication: PAIN MANAGEMENT
     Dosage: 5-325, 1-2 TABS, ONCE IN 4 HOURS
     Route: 048
  16. AMBIEN [Concomitant]
     Indication: SLEEP DISORDER
     Route: 048
  17. ZOLOFT [Concomitant]
     Indication: DEPRESSION
     Route: 048
  18. RIFAXIMIN [Concomitant]
     Indication: CROHN^S DISEASE
     Route: 048
  19. RIFAXIMIN [Concomitant]
     Indication: CROHN^S DISEASE
     Dates: start: 2009, end: 2009
  20. AMOXICILLIN [Concomitant]
     Indication: CROHN^S DISEASE
     Route: 048
  21. FLORASTOR [Concomitant]
     Indication: CROHN^S DISEASE
  22. DRISDOL [Concomitant]
     Dosage: 50000 UNIT, 1 CAP; EVERY WEEK X 4
     Route: 048
  23. DRISDOL [Concomitant]
     Dosage: 50000 UNIT; 1 CAP
     Route: 048
  24. PENTASA [Concomitant]
     Indication: CROHN^S DISEASE
     Route: 048
  25. PENTASA [Concomitant]
     Indication: CROHN^S DISEASE
     Route: 048
     Dates: start: 2006, end: 200909

REACTIONS (2)
  - Influenza [Recovering/Resolving]
  - Weight decreased [Recovered/Resolved]
